FAERS Safety Report 9694980 (Version 1)
Quarter: 2013Q4

REPORT INFORMATION
  Report Type: Spontaneous
  Country: DE (occurrence: DE)
  Receive Date: 20131119
  Receipt Date: 20131119
  Transmission Date: 20140711
  Serious: Yes (Other)
  Sender: FDA-Public Use
  Company Number: DE-BRISTOL-MYERS SQUIBB COMPANY-19799857

PATIENT
  Age: 74 Year
  Sex: Female

DRUGS (5)
  1. PACLITAXEL [Suspect]
     Indication: OVARIAN CANCER
     Route: 042
     Dates: start: 20131018, end: 2013
  2. CARBOPLATIN [Concomitant]
     Indication: OVARIAN CANCER
     Route: 042
  3. FENISTIL [Concomitant]
     Indication: PREMEDICATION
     Route: 042
  4. RANITIC [Concomitant]
     Indication: PREMEDICATION
     Route: 042
  5. DEXAMETHASONE [Concomitant]
     Indication: PREMEDICATION
     Route: 048

REACTIONS (3)
  - Cardiovascular disorder [Recovered/Resolved]
  - Dyspnoea [Recovered/Resolved]
  - Flushing [Recovered/Resolved]
